FAERS Safety Report 18096708 (Version 1)
Quarter: 2020Q3

REPORT INFORMATION
  Report Type: Spontaneous
  Country: DE (occurrence: DE)
  Receive Date: 20200731
  Receipt Date: 20200731
  Transmission Date: 20201103
  Serious: Yes (Congenital Anomaly)
  Sender: FDA-Public Use
  Company Number: DE-TEVA-2020-DE-1807328

PATIENT
  Age: 0 Year
  Sex: Male
  Weight: 3.58 kg

DRUGS (2)
  1. ESCITALOPRAM [Suspect]
     Active Substance: ESCITALOPRAM OXALATE
     Indication: PANIC DISORDER
     Dosage: 10 MILLIGRAM DAILY;
     Route: 064
     Dates: start: 20190323, end: 20190528
  2. CITALOPRAM [Suspect]
     Active Substance: CITALOPRAM HYDROBROMIDE
     Indication: PANIC DISORDER
     Dosage: 10 MILLIGRAM DAILY;
     Route: 064
     Dates: start: 20190529, end: 20191226

REACTIONS (4)
  - Foetal exposure during pregnancy [Unknown]
  - Neonatal pneumonia [Recovered/Resolved]
  - Congenital hydronephrosis [Unknown]
  - Congenital ureteropelvic junction obstruction [Recovered/Resolved with Sequelae]
